FAERS Safety Report 4947812-3 (Version None)
Quarter: 2006Q1

REPORT INFORMATION
  Report Type: 
  Country: None (occurrence: None)
  Receive Date: 20060320
  Receipt Date: 20060315
  Transmission Date: 20060701
  Serious: Yes (Life-Threatening)
  Sender: FDA-Public Use
  Company Number: FR-GLAXOSMITHKLINE-B0416118A

PATIENT
  Age: 58 Year
  Sex: Male

DRUGS (3)
  1. AUGMENTIN '125' [Suspect]
     Indication: ANTIBIOTIC PROPHYLAXIS
     Dosage: 2G PER DAY
     Route: 042
     Dates: start: 20060221, end: 20060221
  2. ATARAX [Suspect]
     Indication: PREMEDICATION
     Dosage: 75MG PER DAY
     Route: 048
     Dates: start: 20060221, end: 20060221
  3. RINGER SOLUTION [Concomitant]
     Dosage: 500ML SINGLE DOSE
     Route: 042
     Dates: start: 20060221, end: 20060221

REACTIONS (5)
  - ANAPHYLACTIC SHOCK [None]
  - ERYTHEMA [None]
  - HYPOTENSION [None]
  - OXYGEN SATURATION DECREASED [None]
  - TACHYCARDIA [None]
